FAERS Safety Report 7183438-1 (Version None)
Quarter: 2010Q4

REPORT INFORMATION
  Report Type: 
  Country: None (occurrence: None)
  Receive Date: 20101220
  Receipt Date: 20101220
  Transmission Date: 20110411
  Serious: Yes (Hospitalization)
  Sender: FDA-Public Use
  Company Number: None

PATIENT
  Age: 63 Year
  Sex: Male
  Weight: 131 kg

DRUGS (2)
  1. LISINOPRIL [Suspect]
     Indication: SURGERY
     Dosage: 5 MG EVERY DAY PO
     Route: 048
     Dates: start: 20101022, end: 20101025
  2. PIPERACILLIN AND TAZOBACTAM [Suspect]
     Indication: INFECTION
     Dosage: 3.375 GM QID IV
     Route: 042
     Dates: start: 20101020, end: 20101025

REACTIONS (1)
  - ANGIOEDEMA [None]
